FAERS Safety Report 6978908-2 (Version None)
Quarter: 2010Q3

REPORT INFORMATION
  Report Type: 
  Country: None (occurrence: None)
  Receive Date: 20100913
  Receipt Date: 20100902
  Transmission Date: 20110219
  Serious: Yes (Hospitalization, Other)
  Sender: FDA-Public Use
  Company Number: DE-JNJFOC-20100901797

PATIENT
  Age: 60 Year
  Sex: Male

DRUGS (5)
  1. REMICADE [Suspect]
     Indication: RHEUMATOID ARTHRITIS
     Route: 042
  2. REMICADE [Suspect]
     Route: 042
  3. LANTAREL [Concomitant]
     Route: 048
  4. MABTHERA [Concomitant]
  5. MARCUMAR [Concomitant]
     Indication: VENOUS THROMBOSIS

REACTIONS (1)
  - GLIOBLASTOMA MULTIFORME [None]
